FAERS Safety Report 22065714 (Version 2)
Quarter: 2023Q2

REPORT INFORMATION
  Report Type: Spontaneous
  Country: US (occurrence: US)
  Receive Date: 20230306
  Receipt Date: 20230411
  Transmission Date: 20230722
  Serious: Yes (Other)
  Sender: FDA-Public Use
  Company Number: US-BAYER-2023A025998

PATIENT
  Age: 59 Year
  Sex: Male

DRUGS (2)
  1. NUBEQA [Suspect]
     Active Substance: DAROLUTAMIDE
  2. DUPIXENT [Concomitant]
     Active Substance: DUPILUMAB
     Dosage: 200 MG, Q2WK
     Route: 058
     Dates: start: 201905

REACTIONS (1)
  - Asthma [None]
